FAERS Safety Report 5579304-5 (Version None)
Quarter: 2008Q1

REPORT INFORMATION
  Report Type: 
  Country: None (occurrence: None)
  Receive Date: 20080102
  Receipt Date: 20071220
  Transmission Date: 20080703
  Serious: Yes (Life-Threatening, Other)
  Sender: FDA-Public Use
  Company Number: GB-TEVA-165598ISR

PATIENT
  Age: 45 Year
  Sex: Male

DRUGS (2)
  1. DICLOFENAC SODIUM [Suspect]
     Route: 048
     Dates: start: 20071210
  2. WARFARIN SODIUM [Suspect]
     Route: 048

REACTIONS (1)
  - INTERNATIONAL NORMALISED RATIO INCREASED [None]
